FAERS Safety Report 6728619-3 (Version None)
Quarter: 2010Q2

REPORT INFORMATION
  Report Type: 
  Country: None (occurrence: None)
  Receive Date: 20100517
  Receipt Date: 20100506
  Transmission Date: 20101027
  Serious: Yes (Death)
  Sender: FDA-Public Use
  Company Number: ES-PFIZER INC-2010057445

PATIENT
  Age: 46 Year
  Sex: Male

DRUGS (4)
  1. ALDACTONE [Suspect]
     Indication: HEPATIC CIRRHOSIS
     Dosage: 50 MG DAILY
     Route: 048
     Dates: start: 20091201, end: 20091228
  2. METHADONE [Concomitant]
     Dosage: 50 MG, 1X/DAY
     Route: 048
  3. PROPRANOLOL [Concomitant]
     Dosage: 60 MG, 1X/DAY
     Route: 048
     Dates: start: 20091201
  4. SEGURIL [Concomitant]
     Indication: ASCITES
     Dosage: 40 MG, 1X/DAY
     Route: 048
     Dates: start: 20091201

REACTIONS (2)
  - HYPERKALAEMIA [None]
  - RENAL FAILURE ACUTE [None]
